FAERS Safety Report 20761762 (Version 2)
Quarter: 2022Q4

REPORT INFORMATION
  Report Type: Spontaneous
  Country: FR (occurrence: FR)
  Receive Date: 20220428
  Receipt Date: 20221231
  Transmission Date: 20230113
  Serious: Yes (Hospitalization, Congenital Anomaly, Other)
  Sender: FDA-Public Use
  Company Number: FR-SA-2022SA124259

PATIENT
  Age: 17 Year
  Sex: Male
  Weight: 2.74 kg

DRUGS (2)
  1. LAMOTRIGINE [Suspect]
     Active Substance: LAMOTRIGINE
     Indication: Epilepsy
     Dosage: UNK
     Route: 064
  2. VALPROATE SODIUM [Suspect]
     Active Substance: VALPROATE SODIUM
     Indication: Epilepsy
     Dosage: UNK (500-0-500 MG)
     Route: 064

REACTIONS (24)
  - Pneumothorax [Unknown]
  - Periarthritis [Unknown]
  - Foetal exposure during pregnancy [Unknown]
  - Multiple congenital abnormalities [Unknown]
  - Pectus excavatum [Unknown]
  - Dysmorphism [Unknown]
  - Scoliosis [Unknown]
  - Generalised tonic-clonic seizure [Unknown]
  - Intellectual disability [Unknown]
  - Salivary hypersecretion [Unknown]
  - Language disorder [Unknown]
  - Gait disturbance [Unknown]
  - Osteochondritis [Unknown]
  - Discomfort [Unknown]
  - Psychomotor skills impaired [Unknown]
  - Asocial behaviour [Unknown]
  - Learning disorder [Unknown]
  - Dyspnoea paroxysmal nocturnal [Unknown]
  - Sleep disorder [Unknown]
  - Premature baby [Unknown]
  - Chest pain [Unknown]
  - Psychomotor retardation [Unknown]
  - Executive dysfunction [Unknown]
  - Visual impairment [Unknown]

NARRATIVE: CASE EVENT DATE: 20180118
